FAERS Safety Report 17768581 (Version 3)
Quarter: 2020Q3

REPORT INFORMATION
  Report Type: Report from Study
  Country: US (occurrence: US)
  Receive Date: 20200512
  Receipt Date: 20200728
  Transmission Date: 20201102
  Serious: Yes (Hospitalization, Other)
  Sender: FDA-Public Use
  Company Number: US-BIOGEN-2020BI00871429

PATIENT
  Age: 42 Year
  Sex: Male

DRUGS (4)
  1. PHENYTOIN. [Suspect]
     Active Substance: PHENYTOIN
     Indication: PRODUCT USED FOR UNKNOWN INDICATION
     Route: 065
  2. TYSABRI [Suspect]
     Active Substance: NATALIZUMAB
     Dosage: 300MG/15ML
     Route: 065
     Dates: start: 20140701
  3. KEPPRA [Concomitant]
     Active Substance: LEVETIRACETAM
     Indication: PRODUCT USED FOR UNKNOWN INDICATION
     Route: 065
  4. TYSABRI [Suspect]
     Active Substance: NATALIZUMAB
     Indication: MULTIPLE SCLEROSIS
     Route: 042
     Dates: start: 20140430

REACTIONS (11)
  - Influenza [Recovered/Resolved]
  - Gastric disorder [Recovered/Resolved]
  - Status epilepticus [Unknown]
  - Vomiting [Unknown]
  - Anticonvulsant drug level decreased [Unknown]
  - Mobility decreased [Recovered/Resolved]
  - Generalised tonic-clonic seizure [Recovered/Resolved]
  - Headache [Unknown]
  - Aphasia [Recovered/Resolved]
  - Toxicity to various agents [Unknown]
  - Migraine [Unknown]

NARRATIVE: CASE EVENT DATE: 20150405
